FAERS Safety Report 6136901-6 (Version None)
Quarter: 2009Q1

REPORT INFORMATION
  Report Type: 
  Country: None (occurrence: None)
  Receive Date: 20090330
  Receipt Date: 20090324
  Transmission Date: 20090719
  Serious: Yes (Hospitalization)
  Sender: FDA-Public Use
  Company Number: FR-AVENTIS-200911166FR

PATIENT
  Age: 86 Year
  Sex: Female

DRUGS (6)
  1. LASIX [Suspect]
     Route: 048
  2. LASIX [Suspect]
     Dosage: DOSE: REDUCED DOSE (NOS)
  3. RENITEC                            /00574901/ [Suspect]
     Route: 048
  4. LANZOR [Concomitant]
     Indication: DRUG USE FOR UNKNOWN INDICATION
     Route: 048
  5. FOSAMAX [Concomitant]
     Indication: DRUG USE FOR UNKNOWN INDICATION
     Route: 048
  6. SINTROM [Concomitant]
     Indication: DRUG USE FOR UNKNOWN INDICATION
     Route: 048

REACTIONS (1)
  - FALL [None]
